FAERS Safety Report 8193527-0 (Version None)
Quarter: 2012Q1

REPORT INFORMATION
  Report Type: 
  Country: None (occurrence: None)
  Receive Date: 20120308
  Receipt Date: 20120302
  Transmission Date: 20120608
  Serious: Yes (Hospitalization)
  Sender: FDA-Public Use
  Company Number: US-ROCHE-1033200

PATIENT
  Sex: Male
  Weight: 103.51 kg

DRUGS (8)
  1. ZELBORAF [Suspect]
     Indication: MALIGNANT MELANOMA
     Dosage: TEMPORARILY STOPPED
     Route: 048
     Dates: start: 20120103
  2. ZELBORAF [Suspect]
     Dosage: DOSE REDUCED
     Dates: start: 20120118
  3. ASPIRIN [Concomitant]
  4. EFFIENT [Concomitant]
  5. METOPROLOL SUCCINATE [Concomitant]
  6. MAGNESIUM OXIDE [Concomitant]
  7. BENICAR [Concomitant]
  8. METFORMIN HYDROCHLORIDE [Concomitant]

REACTIONS (7)
  - RASH [None]
  - MYALGIA [None]
  - DRUG DOSE OMISSION [None]
  - PHOTOPHOBIA [None]
  - STOMATITIS [None]
  - HEADACHE [None]
  - ARTHRALGIA [None]
